FAERS Safety Report 6482342-1 (Version None)
Quarter: 2009Q4

REPORT INFORMATION
  Report Type: 
  Country: None (occurrence: None)
  Receive Date: 20091208
  Receipt Date: 20090608
  Transmission Date: 20100525
  Serious: No
  Sender: FDA-Public Use
  Company Number: US-AMGEN-TCS342489

PATIENT
  Sex: Female
  Weight: 104.9 kg

DRUGS (7)
  1. ENBREL [Suspect]
     Indication: RHEUMATOID ARTHRITIS
     Route: 058
     Dates: start: 20081201, end: 20090401
  2. METHOTREXATE [Concomitant]
     Route: 048
  3. TRAZODONE [Concomitant]
  4. CALCIUM [Concomitant]
  5. VITAMIN D [Concomitant]
  6. LEXAPRO [Concomitant]
  7. ZANAFLEX [Concomitant]

REACTIONS (2)
  - NASAL CONGESTION [None]
  - PRODUCTIVE COUGH [None]
